FAERS Safety Report 25196788 (Version 1)
Quarter: 2025Q2

REPORT INFORMATION
  Report Type: Spontaneous
  Country: JP (occurrence: JP)
  Receive Date: 20250415
  Receipt Date: 20250415
  Transmission Date: 20250717
  Serious: Yes (Hospitalization, Other)
  Sender: GLAXOSMITHKLINE
  Company Number: JP-GSK-JP2025JPN042106

PATIENT

DRUGS (18)
  1. MEPOLIZUMAB [Suspect]
     Active Substance: MEPOLIZUMAB
     Indication: Eosinophilic granulomatosis with polyangiitis
     Dates: start: 20190603, end: 20190603
  2. ATOVAQUONE [Concomitant]
     Active Substance: ATOVAQUONE
     Indication: Antifungal prophylaxis
  3. PREDNISOLONE [Concomitant]
     Active Substance: PREDNISOLONE
     Indication: Eosinophilic granulomatosis with polyangiitis
     Route: 048
     Dates: end: 20190606
  4. PREDNISOLONE [Concomitant]
     Active Substance: PREDNISOLONE
     Route: 048
     Dates: start: 20190607, end: 20190705
  5. PREDNISOLONE [Concomitant]
     Active Substance: PREDNISOLONE
     Route: 048
     Dates: start: 20190706, end: 20190725
  6. PREDNISOLONE [Concomitant]
     Active Substance: PREDNISOLONE
     Route: 048
     Dates: start: 20190726, end: 20190912
  7. DIFLUCAN [Concomitant]
     Active Substance: FLUCONAZOLE
  8. BISOPROLOL FUMARATE [Concomitant]
     Active Substance: BISOPROLOL FUMARATE
  9. TORSEMIDE [Concomitant]
     Active Substance: TORSEMIDE
  10. MEXITIL [Concomitant]
     Active Substance: MEXILETINE HYDROCHLORIDE
  11. Adona [Concomitant]
  12. TRANSAMIN [Concomitant]
     Active Substance: TRANEXAMIC ACID
     Indication: Complication associated with device
  13. COLCHICINE [Concomitant]
     Active Substance: COLCHICINE
  14. OMEPRAZOLE [Concomitant]
     Active Substance: OMEPRAZOLE
  15. BONALON [Concomitant]
     Active Substance: ALENDRONATE SODIUM
  16. ALFACALCIDOL [Concomitant]
     Active Substance: ALFACALCIDOL
  17. LINAGLIPTIN [Concomitant]
     Active Substance: LINAGLIPTIN
  18. LUNESTA [Concomitant]
     Active Substance: ESZOPICLONE

REACTIONS (1)
  - Cardiac failure [Recovered/Resolved]

NARRATIVE: CASE EVENT DATE: 20190823
